APPROVED DRUG PRODUCT: CLOXACILLIN SODIUM
Active Ingredient: CLOXACILLIN SODIUM
Strength: EQ 125MG BASE/5ML
Dosage Form/Route: FOR SOLUTION;ORAL
Application: A062978 | Product #001
Applicant: TEVA PHARMACEUTICALS USA INC
Approved: Apr 6, 1989 | RLD: No | RS: No | Type: DISCN